FAERS Safety Report 10206979 (Version 1)
Quarter: 2014Q2

REPORT INFORMATION
  Report Type: Spontaneous
  Country: US (occurrence: None)
  Receive Date: 20140528
  Receipt Date: 20140528
  Transmission Date: 20141212
  Serious: No
  Sender: FDA-Public Use
  Company Number: None

PATIENT
  Age: 83 Year
  Sex: Female
  Weight: 45.36 kg

DRUGS (1)
  1. PROLIA [Suspect]
     Indication: BONE DISORDER
     Dosage: 1 SHOT  INJECTION
     Route: 030
     Dates: start: 20130225, end: 20130425

REACTIONS (3)
  - Muscle atrophy [None]
  - Gingival atrophy [None]
  - Skin disorder [None]
